FAERS Safety Report 10251210 (Version 1)
Quarter: 2014Q2

REPORT INFORMATION
  Report Type: Spontaneous
  Country: US (occurrence: US)
  Receive Date: 20140620
  Receipt Date: 20140620
  Transmission Date: 20141212
  Serious: No
  Sender: FDA-Public Use
  Company Number: US-ASTRAZENECA-2014SE40608

PATIENT
  Age: 51 Year
  Sex: Male
  Weight: 89.1 kg

DRUGS (4)
  1. QUETIAPINE FUMERATE [Suspect]
     Indication: SLEEP DISORDER
     Dosage: 100-200 MG AT NIGHT
     Route: 048
     Dates: start: 2009
  2. AMBIEN [Concomitant]
     Indication: SLEEP DISORDER
     Route: 048
  3. KLONOPIN [Concomitant]
     Indication: MENTAL DISORDER
     Dosage: 1-2 MG HS
     Route: 048
  4. OTHER [Concomitant]
     Indication: BLOOD TESTOSTERONE ABNORMAL
     Dosage: 3/4 OF A CC WEEK
     Dates: start: 2012

REACTIONS (5)
  - Blood testosterone decreased [Unknown]
  - Dry mouth [Unknown]
  - Weight increased [Unknown]
  - Intentional product misuse [Unknown]
  - Off label use [Unknown]
